FAERS Safety Report 10250737 (Version 1)
Quarter: 2014Q2

REPORT INFORMATION
  Report Type: Spontaneous
  Country: US (occurrence: US)
  Receive Date: 20140620
  Receipt Date: 20140620
  Transmission Date: 20141212
  Serious: No
  Sender: FDA-Public Use
  Company Number: US-TEVA-489355USA

PATIENT
  Age: 39 Year
  Sex: Female

DRUGS (7)
  1. COPAXONE 40MG [Suspect]
     Indication: MULTIPLE SCLEROSIS
     Dosage: 17.1429 MILLIGRAM DAILY;
     Route: 058
     Dates: start: 201405
  2. COPAXONE 40MG [Suspect]
     Dosage: 8.5714 MILLIGRAM DAILY;
     Dates: start: 201309, end: 201405
  3. WELLBUTRIN [Concomitant]
  4. VITAMIN D [Concomitant]
  5. APRI [Concomitant]
  6. FISH OIL [Concomitant]
  7. GLUCOSAMINE [Concomitant]

REACTIONS (7)
  - Ankle fracture [Unknown]
  - Rash [Unknown]
  - Rash [Unknown]
  - Peripheral swelling [Unknown]
  - Urticaria [Unknown]
  - Erythema [Unknown]
  - Hypersensitivity [Unknown]
